FAERS Safety Report 12543397 (Version 1)
Quarter: 2016Q3

REPORT INFORMATION
  Report Type: Spontaneous
  Country: US (occurrence: US)
  Receive Date: 20160711
  Receipt Date: 20160711
  Transmission Date: 20161109
  Serious: No
  Sender: FDA-Public Use
  Company Number: US-TEVA-587345USA

PATIENT
  Sex: Female
  Weight: 85.81 kg

DRUGS (1)
  1. VENLAFAXINE [Suspect]
     Active Substance: VENLAFAXINE HYDROCHLORIDE
     Indication: MAJOR DEPRESSION
     Route: 065
     Dates: start: 20150310

REACTIONS (7)
  - Hyperhidrosis [Unknown]
  - Dizziness [Unknown]
  - Headache [Unknown]
  - Anaemia [Unknown]
  - Abdominal pain upper [Unknown]
  - Paraesthesia [Unknown]
  - Blood cholesterol increased [Unknown]
